FAERS Safety Report 11051051 (Version 1)
Quarter: 2015Q2

REPORT INFORMATION
  Report Type: Spontaneous
  Country: US (occurrence: None)
  Receive Date: 20150417
  Receipt Date: 20150417
  Transmission Date: 20150821
  Serious: Yes (Other)
  Sender: FDA-Public Use
  Company Number: COL_19542_2015

PATIENT
  Age: 19 Year
  Sex: Male

DRUGS (2)
  1. COLGATE OPTIC WHITE ENAMEL WHITE LUMINOUS MINT [Suspect]
     Active Substance: SODIUM MONOFLUOROPHOSPHATE
     Indication: PRODUCT USED FOR UNKNOWN INDICATION
     Dosage: COVERED HALF THE HEAD OF TOOTHBRUSH
     Route: 048
     Dates: start: 201402, end: 201402
  2. COLGATE OPTIC WHITE MOUTHWASH (HYDROGENPEROXIDE 2G/100ML) [Suspect]
     Active Substance: HYDROGEN PEROXIDE
     Indication: PRODUCT USED FOR UNKNOWN INDICATION
     Dosage: HALF A CAPFUL
     Route: 048
     Dates: start: 201402, end: 201402

REACTIONS (1)
  - Anaphylactic shock [None]

NARRATIVE: CASE EVENT DATE: 201402
